FAERS Safety Report 5276546-3 (Version None)
Quarter: 2007Q1

REPORT INFORMATION
  Report Type: 
  Country: None (occurrence: None)
  Receive Date: 20061213
  Receipt Date: 20040127
  Transmission Date: 20070707
  Serious: Yes (Hospitalization)
  Sender: FDA-Public Use
  Company Number: 2004UW01456

PATIENT
  Age: 70 Year
  Sex: Male

DRUGS (14)
  1. SEROQUEL [Suspect]
     Indication: PSYCHOTIC DISORDER
     Dosage: 100 MG HS PO
     Route: 048
  2. ALBUTEROL [Concomitant]
  3. NORVASC [Concomitant]
  4. LOPID [Concomitant]
  5. ASPIRIN [Concomitant]
  6. LASIX [Concomitant]
  7. BUPROPION HCL [Concomitant]
  8. FOLIC ACID [Concomitant]
  9. FORADIL [Concomitant]
  10. LOPRESSOR [Concomitant]
  11. POTASSIUM CHLORIDE [Concomitant]
  12. CITALOPRAM HYDROBROMIDE [Concomitant]
  13. ATROVENT [Concomitant]
  14. NITROGLYCERIN [Concomitant]

REACTIONS (1)
  - OEDEMA [None]
